FAERS Safety Report 9360988 (Version 2)
Quarter: 2013Q3

REPORT INFORMATION
  Report Type: Spontaneous
  Country: US (occurrence: US)
  Receive Date: 20130621
  Receipt Date: 20130724
  Transmission Date: 20140515
  Serious: Yes (Disabling)
  Sender: FDA-Public Use
  Company Number: US-UCBSA-088861

PATIENT
  Sex: Female

DRUGS (7)
  1. KEPPRA [Suspect]
     Indication: CONVULSION
     Dates: start: 201303
  2. METFORMIN [Concomitant]
  3. PLAVIX [Concomitant]
  4. LISINOPRIL [Concomitant]
     Dosage: 5 MG
  5. PRAVASTATIN [Concomitant]
     Dosage: UNKNOWN DOSE
  6. GLUCOSIDE [Concomitant]
  7. ASPIRIN [Concomitant]
     Dosage: UNKNOWN DOSE; 1 TIME A DAY

REACTIONS (1)
  - Nervous system disorder [Not Recovered/Not Resolved]
